FAERS Safety Report 18635314 (Version 1)
Quarter: 2020Q4

REPORT INFORMATION
  Report Type: Other
  Country: MX (occurrence: MX)
  Receive Date: 20201218
  Receipt Date: 20201218
  Transmission Date: 20210114
  Serious: Yes (Disabling)
  Sender: FDA-Public Use
  Company Number: MX-ROCHE-2735834

PATIENT
  Age: 42 Year
  Sex: Female
  Weight: 54 kg

DRUGS (1)
  1. OCREVUS [Suspect]
     Active Substance: OCRELIZUMAB
     Indication: MULTIPLE SCLEROSIS
     Route: 042
     Dates: start: 20190802

REACTIONS (8)
  - Malaise [Recovering/Resolving]
  - Gait disturbance [Recovering/Resolving]
  - Hypersensitivity [Recovering/Resolving]
  - Discomfort [Recovering/Resolving]
  - Fatigue [Recovering/Resolving]
  - Hypoaesthesia [Recovering/Resolving]
  - Insomnia [Recovering/Resolving]
  - Headache [Recovering/Resolving]

NARRATIVE: CASE EVENT DATE: 20201214
